FAERS Safety Report 11273410 (Version 1)
Quarter: 2015Q3

REPORT INFORMATION
  Report Type: Spontaneous
  Country: US (occurrence: None)
  Receive Date: 20150714
  Receipt Date: 20150714
  Transmission Date: 20151125
  Serious: Yes (Other)
  Sender: FDA-Public Use
  Company Number: None

PATIENT
  Age: 35 Year

DRUGS (1)
  1. MIRENA [Suspect]
     Active Substance: LEVONORGESTREL

REACTIONS (5)
  - Weight increased [None]
  - Suppressed lactation [None]
  - Alopecia [None]
  - Blood glucose increased [None]
  - Pregnancy [None]

NARRATIVE: CASE EVENT DATE: 20111109
